FAERS Safety Report 8967910 (Version 1)
Quarter: 2012Q4

REPORT INFORMATION
  Report Type: 
  Country: US (occurrence: US)
  Receive Date: 20121218
  Receipt Date: 20121218
  Transmission Date: 20130627
  Serious: No
  Sender: FDA-Public Use
  Company Number: US-GLAXOSMITHKLINE-A0972667A

PATIENT
  Age: 61 Year
  Sex: Female
  Weight: 63.6 kg

DRUGS (5)
  1. COREG CR [Suspect]
     Indication: HYPERTENSION
     Dosage: 20MG Per day
     Route: 048
     Dates: start: 20120228, end: 20120313
  2. AMITIZA [Concomitant]
     Indication: CONSTIPATION
     Dosage: 8MCG Twice per day
     Route: 048
     Dates: start: 2010
  3. CRESTOR [Concomitant]
     Indication: BLOOD CHOLESTEROL INCREASED
     Dosage: 5MG Per day
     Route: 048
  4. PREMARIN [Concomitant]
     Indication: MENOPAUSE
     Dosage: .625MG Per day
     Route: 048
     Dates: start: 2009
  5. SYNTHROID [Concomitant]
     Indication: HYPOTHYROIDISM
     Dosage: .025MCG Per day
     Route: 048
     Dates: start: 2011

REACTIONS (4)
  - Headache [Recovered/Resolved]
  - Chest pain [Recovered/Resolved]
  - Nervousness [Recovered/Resolved]
  - Tachycardia [Recovered/Resolved]
